FAERS Safety Report 4716130-0 (Version None)
Quarter: 2005Q3

REPORT INFORMATION
  Report Type: 
  Country: None (occurrence: None)
  Receive Date: 20050718
  Receipt Date: 20041209
  Transmission Date: 20060218
  Serious: Yes (Hospitalization)
  Sender: FDA-Public Use
  Company Number: US-MERCK-0412USA01165

PATIENT
  Age: 66 Year
  Sex: Female
  Weight: 81 kg

DRUGS (5)
  1. VIOXX [Suspect]
     Route: 048
     Dates: start: 20010101, end: 20040601
  2. SYNTHROID [Concomitant]
     Route: 065
  3. TOPROL-XL [Concomitant]
     Indication: HYPERTENSION
     Route: 065
  4. ZOCOR [Concomitant]
     Route: 065
  5. PRAVACHOL [Concomitant]
     Route: 065

REACTIONS (9)
  - ACUTE CORONARY SYNDROME [None]
  - CHRONIC SINUSITIS [None]
  - DIVERTICULITIS [None]
  - EYE INJURY [None]
  - HAEMORRHOIDS [None]
  - HEADACHE [None]
  - INTRAOCULAR PRESSURE INCREASED [None]
  - MYOCARDIAL INFARCTION [None]
  - VISUAL DISTURBANCE [None]
